FAERS Safety Report 7291551-3 (Version None)
Quarter: 2011Q1

REPORT INFORMATION
  Report Type: 
  Country: None (occurrence: None)
  Receive Date: 20110214
  Receipt Date: 20110202
  Transmission Date: 20110831
  Serious: Yes (Hospitalization)
  Sender: FDA-Public Use
  Company Number: PHHO2011US02385

PATIENT
  Sex: Male
  Weight: 101.59 kg

DRUGS (10)
  1. LIPITOR [Concomitant]
  2. BLINDED ALISKIREN [Suspect]
     Indication: CORONARY ARTERY DISEASE
     Dosage: CODE NOT BROKEN
     Route: 048
     Dates: start: 20090922
  3. METOCLOPRAMIDE HCL [Concomitant]
  4. BLINDED PLACEBO [Suspect]
     Indication: CORONARY ARTERY DISEASE
     Dosage: CODE NOT BROKEN
     Route: 048
     Dates: start: 20090922
  5. MULTIVITAMIN [Concomitant]
  6. FISH OIL [Concomitant]
  7. ALISKIREN [Suspect]
     Indication: CORONARY ARTERY DISEASE
  8. BLINDED NO TREATMENT RECEIVED [Suspect]
     Indication: CORONARY ARTERY DISEASE
     Dosage: CODE NOT BROKEN
     Route: 048
     Dates: start: 20090922
  9. NORVASC [Concomitant]
  10. ASPIRIN [Concomitant]

REACTIONS (3)
  - CONSTIPATION [None]
  - GASTROENTERITIS [None]
  - ABDOMINAL PAIN [None]
